FAERS Safety Report 10910938 (Version 2)
Quarter: 2015Q2

REPORT INFORMATION
  Report Type: Report from Study
  Country: CA (occurrence: CA)
  Receive Date: 20150312
  Receipt Date: 20150408
  Transmission Date: 20150821
  Serious: Yes (Hospitalization, Other)
  Sender: FDA-Public Use
  Company Number: CA-ABBVIE-15K-028-1356568-00

PATIENT
  Age: 64 Year
  Sex: Female
  Weight: 122 kg

DRUGS (3)
  1. ASACOL [Concomitant]
     Active Substance: MESALAMINE
     Indication: COLITIS ULCERATIVE
     Route: 048
  2. HUMIRA [Suspect]
     Active Substance: ADALIMUMAB
     Route: 058
     Dates: start: 2015
  3. HUMIRA [Suspect]
     Active Substance: ADALIMUMAB
     Indication: COLITIS ULCERATIVE
     Route: 058
     Dates: start: 20120605, end: 20150210

REACTIONS (4)
  - Kidney infection [Recovered/Resolved]
  - Female genital tract fistula [Not Recovered/Not Resolved]
  - Nephrolithiasis [Recovered/Resolved]
  - Pelvic fluid collection [Unknown]

NARRATIVE: CASE EVENT DATE: 2013
